FAERS Safety Report 26008331 (Version 14)
Quarter: 2025Q4

REPORT INFORMATION
  Report Type: Report from Study
  Country: CA (occurrence: CA)
  Receive Date: 20251106
  Receipt Date: 20251217
  Transmission Date: 20260118
  Serious: Yes (Hospitalization, Other)
  Sender: HLS THERAPEUTICS
  Company Number: CA-HLS-202501880

PATIENT
  Age: 28 Year
  Sex: Male

DRUGS (13)
  1. CLOZARIL [Suspect]
     Active Substance: CLOZAPINE
     Indication: Product used for unknown indication
     Route: 048
  2. CLOZARIL [Suspect]
     Active Substance: CLOZAPINE
     Indication: Product used for unknown indication
     Route: 048
     Dates: start: 20240523, end: 20251115
  3. CLOZARIL [Suspect]
     Active Substance: CLOZAPINE
     Indication: Product used for unknown indication
     Route: 048
     Dates: start: 2025, end: 20250717
  4. CLOZARIL [Suspect]
     Active Substance: CLOZAPINE
     Indication: Product used for unknown indication
     Dosage: 100 MG TABLET 200 MG EVERY DAY AT 1700 ?TMCE 2 TABLETS AT 5 EM (ALONG WITH 1X25 MG TABLET FOR A TOTA
     Route: 065
     Dates: start: 20250708
  5. CLOZARIL [Suspect]
     Active Substance: CLOZAPINE
     Indication: Product used for unknown indication
     Dosage: LOWER DOSAGE: 300MG AM AND 400 MG PM.
     Route: 065
     Dates: start: 202510
  6. CLOZARIL [Suspect]
     Active Substance: CLOZAPINE
     Indication: Product used for unknown indication
     Dosage: LOWER DOSE: 300 MG AM AND 400 MG PM
     Route: 065
  7. CLOZARIL [Suspect]
     Active Substance: CLOZAPINE
     Indication: Product used for unknown indication
     Dosage: PATIENT HAD NOT RECEIVED CLOZAPINE ON NOVEMBER 15TH, 16TH, 17TH, AND 18TH 2025.
     Route: 048
     Dates: start: 20240523
  8. CLOZARIL [Suspect]
     Active Substance: CLOZAPINE
     Indication: Product used for unknown indication
     Route: 048
     Dates: start: 2025, end: 202510
  9. CLOZARIL [Suspect]
     Active Substance: CLOZAPINE
     Indication: Product used for unknown indication
     Route: 065
  10. CLOZARIL [Suspect]
     Active Substance: CLOZAPINE
     Indication: Product used for unknown indication
     Dosage: 800 MG AT BED TIME
     Route: 065
     Dates: start: 20250206
  11. CLOBAZAM [Concomitant]
     Active Substance: CLOBAZAM
     Indication: Product used for unknown indication
     Dosage: 10 MG TABLET?TARE 2 TABLETS AT 11AM AND AT 5PM
     Route: 065
     Dates: start: 20250605
  12. VITAMIN D [Concomitant]
     Active Substance: VITAMIN D NOS
     Indication: Product used for unknown indication
     Dosage: 1000 UNIT EVERY DAY AT 11:00?TAKE 1 TABLET AT 11 AM
     Route: 065
     Dates: start: 20240820
  13. ZOLOFT [Concomitant]
     Active Substance: SERTRALINE HYDROCHLORIDE
     Indication: Product used for unknown indication
     Dosage: TAKE 3 CAPSULES AT 11 AM
     Route: 065
     Dates: start: 20250604

REACTIONS (14)
  - Agitation [Unknown]
  - Neutropenia [Not Recovered/Not Resolved]
  - Anxiety [Unknown]
  - Constipation [Unknown]
  - Pyrexia [Unknown]
  - Influenza like illness [Unknown]
  - Dyspepsia [Unknown]
  - Pain [Unknown]
  - Therapy interrupted [Unknown]
  - Patient uncooperative [Unknown]
  - Pneumonia [Unknown]
  - Psychotic disorder [Unknown]
  - Rash [Unknown]
  - Leukopenia [Not Recovered/Not Resolved]

NARRATIVE: CASE EVENT DATE: 20250717
